FAERS Safety Report 5801452-2 (Version None)
Quarter: 2008Q3

REPORT INFORMATION
  Report Type: 
  Country: None (occurrence: None)
  Receive Date: 20080703
  Receipt Date: 20080703
  Transmission Date: 20090109
  Serious: Yes (Hospitalization)
  Sender: FDA-Public Use
  Company Number: None

PATIENT
  Age: 31 Year
  Sex: Female

DRUGS (3)
  1. QUETIAPINE FUMARATE [Suspect]
     Indication: DEPRESSION
     Dosage: UNKOWN - OVERDOSE PO
     Route: 048
  2. OXYCODONE HCL [Suspect]
     Indication: PAIN
     Dosage: UNKNOWN - OVERDOSE PO
     Route: 048
  3. ACETAMINOPHEN [Suspect]
     Indication: PAIN
     Dosage: UNKNOWN - OVERDOSE PO
     Route: 048

REACTIONS (11)
  - AFFECT LABILITY [None]
  - AFFECTIVE DISORDER [None]
  - ANXIETY [None]
  - CONVULSION [None]
  - DRUG DEPENDENCE [None]
  - DRUG SCREEN POSITIVE [None]
  - JUDGEMENT IMPAIRED [None]
  - OVERDOSE [None]
  - SOMNOLENCE [None]
  - STRESS [None]
  - SUICIDAL IDEATION [None]
